FAERS Safety Report 4953136-0 (Version None)
Quarter: 2006Q1

REPORT INFORMATION
  Report Type: 
  Country: None (occurrence: None)
  Receive Date: 20060324
  Receipt Date: 20060313
  Transmission Date: 20060701
  Serious: Yes (Death)
  Sender: FDA-Public Use
  Company Number: JP-JNJFOC-20060303354

PATIENT
  Sex: Male

DRUGS (21)
  1. LEUSTATIN [Suspect]
     Route: 042
  2. LEUSTATIN [Suspect]
     Route: 042
  3. MITOXANTRONE [Concomitant]
     Route: 042
  4. RABEPRAZOLE SODIUM [Concomitant]
     Route: 048
  5. SULFAMETHOXAZOLE + TRIMETHOPRIM [Concomitant]
     Route: 048
  6. SULFAMETHOXAZOLE + TRIMETHOPRIM [Concomitant]
     Indication: PROPHYLAXIS
     Route: 048
  7. LEVOTHYROXINE SODIUM [Concomitant]
     Indication: HYPOTHYROIDISM
     Route: 048
  8. FLUCONAZOLE [Concomitant]
     Indication: PROPHYLAXIS
     Route: 048
  9. AMLODIPINE BASILATE [Concomitant]
     Indication: HYPERTENSION
     Route: 048
  10. BUNAZOSIN HYDROCHLORIDE [Concomitant]
     Indication: HYPERTENSION
     Route: 048
  11. PRAVASTATIN SODIUM [Concomitant]
     Indication: HYPERLIPIDAEMIA
     Route: 048
  12. PREDNISOLONE [Concomitant]
     Indication: ARTHRITIS
     Route: 048
  13. FERROUS SULFATE TAB [Concomitant]
     Indication: IRON DEFICIENCY ANAEMIA
     Route: 048
  14. INSULIN HUMAN [Concomitant]
     Route: 058
  15. FILGRASTIM [Concomitant]
     Route: 058
  16. FILGRASTIM [Concomitant]
     Route: 058
  17. SENNOSIDE [Concomitant]
     Indication: CONSTIPATION
     Route: 048
  18. MOSAPRIDE CITRATE [Concomitant]
     Indication: PROPHYLAXIS
     Route: 048
  19. FILGRASTIM [Concomitant]
     Route: 058
  20. FILGRASTIM [Concomitant]
     Route: 058
  21. MAGNESIUM OXIDE [Concomitant]
     Indication: CONSTIPATION
     Route: 048

REACTIONS (4)
  - BRONCHOPNEUMONIA [None]
  - HAIRY CELL LEUKAEMIA [None]
  - ORAL INTAKE REDUCED [None]
  - STOMATITIS [None]
